FAERS Safety Report 9818586 (Version 2)
Quarter: 2014Q2

REPORT INFORMATION
  Report Type: Spontaneous
  Country: US (occurrence: None)
  Receive Date: 20131127
  Receipt Date: 20131127
  Transmission Date: 20141212
  Serious: No
  Sender: FDA-Public Use
  Company Number: 217703

PATIENT
  Sex: Female

DRUGS (1)
  1. PICATO GEL [Suspect]
     Indication: ACTINIC KERATOSIS
     Route: 061
     Dates: start: 20120504, end: 20120504

REACTIONS (13)
  - Application site erythema [None]
  - Application site pain [None]
  - Application site pustules [None]
  - Oral discomfort [None]
  - Application site scab [None]
  - Incorrect drug administration duration [None]
  - Drug administered at inappropriate site [None]
  - Incorrect dose administered [None]
  - Intercepted drug dispensing error [None]
  - Off label use [None]
  - Incorrect product storage [None]
  - Blood blister [None]
  - Application site ulcer [None]
